FAERS Safety Report 5910498-5 (Version None)
Quarter: 2008Q4

REPORT INFORMATION
  Report Type: 
  Country: None (occurrence: None)
  Receive Date: 20081007
  Receipt Date: 20080206
  Transmission Date: 20090506
  Serious: No
  Sender: FDA-Public Use
  Company Number: US-ASTRAZENECA-2008UW02521

PATIENT
  Age: 64 Year
  Sex: Female

DRUGS (1)
  1. ARIMIDEX [Suspect]
     Indication: BREAST CANCER
     Route: 048

REACTIONS (6)
  - BLOOD PRESSURE FLUCTUATION [None]
  - CARPAL TUNNEL SYNDROME [None]
  - COUGH [None]
  - HOT FLUSH [None]
  - ILL-DEFINED DISORDER [None]
  - NEUROPATHY PERIPHERAL [None]
